FAERS Safety Report 19450226 (Version 4)
Quarter: 2021Q3

REPORT INFORMATION
  Report Type: Spontaneous
  Country: US (occurrence: US)
  Receive Date: 20210622
  Receipt Date: 20210716
  Transmission Date: 20211014
  Serious: No
  Sender: FDA-Public Use
  Company Number: US-SA-2021SA203823

PATIENT
  Age: 61 Year
  Sex: Male

DRUGS (10)
  1. NAPROXEN. [Concomitant]
     Active Substance: NAPROXEN
     Dosage: UNK
  2. VITAMIN E NOS [Concomitant]
     Active Substance: .ALPHA.-TOCOPHEROL
     Dosage: UNK
  3. ZINC. [Concomitant]
     Active Substance: ZINC
     Dosage: UNK
  4. MODERNA COVID?19 VACCINE [Concomitant]
     Active Substance: CX-024414
     Indication: COVID-19 IMMUNISATION
     Dosage: UNK
  5. GLUCOSAMINE [Concomitant]
     Active Substance: GLUCOSAMINE
     Dosage: UNK
  6. DUPIXENT [Suspect]
     Active Substance: DUPILUMAB
     Indication: DERMATITIS ATOPIC
     Dosage: 300 MG, QOW (LOADING DOSE)
     Route: 058
     Dates: start: 20210609, end: 20210609
  7. DUPIXENT [Suspect]
     Active Substance: DUPILUMAB
     Dosage: (MAINTENANCE DOSE) 300 MG, QOW
     Dates: start: 20210629
  8. VITAMIN D3 [Concomitant]
     Active Substance: CHOLECALCIFEROL
     Dosage: UNK
  9. VITAMIN B12 [Concomitant]
     Active Substance: CYANOCOBALAMIN
     Dosage: UNK
  10. FOLIC ACID. [Concomitant]
     Active Substance: FOLIC ACID
     Dosage: 50MG

REACTIONS (6)
  - Incorrect dose administered [Unknown]
  - Fatigue [Unknown]
  - Extra dose administered [Unknown]
  - Injection site discomfort [Unknown]
  - Injection site mass [Unknown]
  - Sinusitis [Unknown]

NARRATIVE: CASE EVENT DATE: 202106
